FAERS Safety Report 10004703 (Version 2)
Quarter: 2014Q2

REPORT INFORMATION
  Report Type: Report from Study
  Country: KE (occurrence: KE)
  Receive Date: 20140312
  Receipt Date: 20140417
  Transmission Date: 20141212
  Serious: Yes (Death, Other)
  Sender: FDA-Public Use
  Company Number: KE-GILEAD-2014-0096146

PATIENT
  Age: 41 Year
  Sex: Male
  Weight: 60 kg

DRUGS (17)
  1. TENOFOVIR DISOPROXIL FUMARATE [Suspect]
     Indication: HIV INFECTION
     Dosage: UNK
     Route: 065
     Dates: start: 20140128, end: 20140224
  2. EMTRICITABINE [Suspect]
     Indication: HIV INFECTION
     Dosage: UNK
     Route: 065
     Dates: start: 20140128, end: 20140224
  3. EFAVIRENZ [Suspect]
     Indication: HIV INFECTION
     Dosage: UNK
     Route: 065
     Dates: start: 20140128, end: 20140224
  4. COTRIMOXAZOLE [Suspect]
     Indication: PRODUCT USED FOR UNKNOWN INDICATION
     Dosage: UNK
     Route: 065
     Dates: start: 20140113, end: 20140224
  5. ISONIAZID [Suspect]
     Indication: PRODUCT USED FOR UNKNOWN INDICATION
     Dosage: UNK
     Route: 065
     Dates: start: 20140128, end: 20140224
  6. PYRIDOXINE [Suspect]
     Indication: PROPHYLAXIS
     Dosage: 25 MG, QD
     Route: 065
     Dates: start: 20140128, end: 20140224
  7. FLUCONAZOLE [Suspect]
     Indication: PRODUCT USED FOR UNKNOWN INDICATION
     Dosage: UNK
     Route: 065
     Dates: start: 20140128, end: 20140224
  8. ENALAPRIL [Suspect]
     Indication: HIV PERIPHERAL NEUROPATHY
     Dosage: 5 MG, QD
     Route: 065
     Dates: start: 20140206, end: 20140224
  9. ENALAPRIL [Suspect]
     Indication: PROTEINURIA
  10. CEFTRIAXONE [Concomitant]
     Indication: MENINGITIS BACTERIAL
     Dosage: 2 G, BID
     Route: 042
     Dates: start: 20140203, end: 20140217
  11. AZITHROMYCIN [Concomitant]
     Indication: PRODUCT USED FOR UNKNOWN INDICATION
     Dosage: UNK
     Route: 065
     Dates: start: 20140128, end: 20140130
  12. ALBENDAZOLE [Concomitant]
     Indication: PRODUCT USED FOR UNKNOWN INDICATION
     Dosage: UNK
     Route: 065
     Dates: start: 20140128, end: 20140128
  13. CIPROFLOXACIN [Concomitant]
     Indication: PRODUCT USED FOR UNKNOWN INDICATION
     Dosage: UNK
     Route: 065
     Dates: start: 20140120, end: 20140203
  14. METRONIDAZOLE [Concomitant]
     Indication: PRODUCT USED FOR UNKNOWN INDICATION
     Dosage: UNK
     Route: 065
     Dates: start: 20140128, end: 20140202
  15. AMITRIPTYLINE [Concomitant]
     Indication: MENINGITIS BACTERIAL
     Dosage: 25 MG, QD
     Route: 048
     Dates: start: 20140203, end: 20140209
  16. PARACETAMOL [Concomitant]
     Indication: MENINGITIS BACTERIAL
     Dosage: 1 G, TID
     Route: 048
     Dates: start: 20140203
  17. ANUSOL                             /00117301/ [Concomitant]
     Indication: HAEMORRHOIDS
     Route: 054

REACTIONS (1)
  - Death [Fatal]
